FAERS Safety Report 9761050 (Version 3)
Quarter: 2014Q1

REPORT INFORMATION
  Report Type: Spontaneous
  Country: US (occurrence: US)
  Receive Date: 20131216
  Receipt Date: 20140203
  Transmission Date: 20141002
  Serious: No
  Sender: FDA-Public Use
  Company Number: US-PFIZER INC-2013356220

PATIENT
  Age: 72 Year
  Sex: Female

DRUGS (1)
  1. PREMPRO [Suspect]
     Indication: HOT FLUSH
     Dosage: UNK
     Dates: start: 2013

REACTIONS (7)
  - Oedema peripheral [Unknown]
  - Dysphonia [Unknown]
  - Diplopia [Unknown]
  - Eye disorder [Unknown]
  - Dysstasia [Unknown]
  - Chest pain [Unknown]
  - Breast pain [Unknown]
